FAERS Safety Report 6578071-6 (Version None)
Quarter: 2010Q1

REPORT INFORMATION
  Report Type: 
  Country: None (occurrence: None)
  Receive Date: 20100211
  Receipt Date: 20100201
  Transmission Date: 20100710
  Serious: Yes (Death, Other)
  Sender: FDA-Public Use
  Company Number: US-PURDUE-USA-2010-0041691

PATIENT
  Sex: Female
  Weight: 181.41 kg

DRUGS (3)
  1. OXYCODONE HYDROCHLORIDE [Suspect]
     Indication: DRUG ABUSE
  2. MARIJUANA [Suspect]
     Indication: DRUG ABUSE
  3. ALPRAZOLAM [Suspect]
     Indication: DRUG ABUSE

REACTIONS (3)
  - DEPENDENCE [None]
  - MULTIPLE DRUG OVERDOSE ACCIDENTAL [None]
  - SUBSTANCE ABUSE [None]
